FAERS Safety Report 21667709 (Version 1)
Quarter: 2022Q4

REPORT INFORMATION
  Report Type: Spontaneous
  Country: US (occurrence: None)
  Receive Date: 20221130
  Receipt Date: 20221130
  Transmission Date: 20230112
  Serious: Yes (Other)
  Sender: FDA-Public Use
  Company Number: None

PATIENT
  Age: 74 Year
  Sex: Male
  Weight: 135 kg

DRUGS (4)
  1. CEPHALEXIN [Suspect]
     Active Substance: CEPHALEXIN
  2. INDOMETHACIN [Suspect]
     Active Substance: INDOMETHACIN
  3. HYDROCHLOROTHIAZIDE\TRIAMTERENE [Suspect]
     Active Substance: HYDROCHLOROTHIAZIDE\TRIAMTERENE
  4. ALLOPURINOL [Suspect]
     Active Substance: ALLOPURINOL

REACTIONS (4)
  - Condition aggravated [None]
  - Pain [None]
  - Gout [None]
  - Tendon rupture [None]

NARRATIVE: CASE EVENT DATE: 20200726
